FAERS Safety Report 7562986-6 (Version None)
Quarter: 2011Q2

REPORT INFORMATION
  Report Type: 
  Country: None (occurrence: None)
  Receive Date: 20110615
  Receipt Date: 20110601
  Transmission Date: 20111010
  Serious: Yes (Hospitalization, Other)
  Sender: FDA-Public Use
  Company Number: 2009S1005799

PATIENT
  Age: 64 Year
  Sex: Female
  Weight: 78.0187 kg

DRUGS (1)
  1. SODIUM PHOSPHATE MONOBASIC MONOHYDRATE AND NAPO4 DIBASIC ANHYDROUS [Suspect]
     Indication: COLONOSCOPY
     Dosage: 90 ML;TOTAL;PO
     Dates: start: 20030908, end: 20030909

REACTIONS (6)
  - HYPERPARATHYROIDISM [None]
  - ANAEMIA [None]
  - DIALYSIS [None]
  - RENAL FAILURE [None]
  - HYPERTENSION [None]
  - RENAL FAILURE CHRONIC [None]
